FAERS Safety Report 13814884 (Version 1)
Quarter: 2017Q3

REPORT INFORMATION
  Report Type: Spontaneous
  Country: US (occurrence: US)
  Receive Date: 20170731
  Receipt Date: 20170731
  Transmission Date: 20171127
  Serious: Yes (Hospitalization)
  Sender: FDA-Public Use
  Company Number: US-ELI_LILLY_AND_COMPANY-US201707008162

PATIENT
  Sex: Male

DRUGS (5)
  1. HUMULIN N [Suspect]
     Active Substance: INSULIN HUMAN
     Dosage: UNK UNK, ON A SLIDING SCALE USUALLY 26 UNITS
     Route: 058
     Dates: start: 19881130
  2. HUMALOG [Suspect]
     Active Substance: INSULIN LISPRO
     Indication: TYPE 2 DIABETES MELLITUS
     Dosage: UNK UNK, ON A SLIDING SCALE IF BLOOD SUGAR IS OVER 200
     Route: 058
     Dates: start: 19881130
  3. HUMULIN N [Suspect]
     Active Substance: INSULIN HUMAN
     Indication: TYPE 2 DIABETES MELLITUS
     Dosage: 30 U, BEFORE BREAKFAST
     Route: 058
     Dates: start: 19881130
  4. HUMULIN N [Suspect]
     Active Substance: INSULIN HUMAN
     Dosage: 30 U, BEFORE BREAKFAST
     Route: 058
  5. HUMULIN N [Suspect]
     Active Substance: INSULIN HUMAN
     Dosage: UNK UNK, ON A SLIDING SCALE USUALLY 26 UNITS
     Route: 058

REACTIONS (4)
  - Cardiac disorder [Recovering/Resolving]
  - Dehydration [Recovering/Resolving]
  - Lymphoedema [Unknown]
  - Blood glucose increased [Unknown]

NARRATIVE: CASE EVENT DATE: 2007
